FAERS Safety Report 10244264 (Version 1)
Quarter: 2014Q2

REPORT INFORMATION
  Report Type: Spontaneous
  Country: FR (occurrence: FR)
  Receive Date: 20140618
  Receipt Date: 20140618
  Transmission Date: 20141212
  Serious: Yes (Other)
  Sender: FDA-Public Use
  Company Number: FR-ELI_LILLY_AND_COMPANY-FR201406004742

PATIENT
  Age: 80 Year
  Sex: Male

DRUGS (2)
  1. ALIMTA [Suspect]
     Indication: MESOTHELIOMA
     Route: 042
  2. CISPLATINE [Concomitant]
     Indication: MESOTHELIOMA

REACTIONS (2)
  - Lung disorder [Unknown]
  - Pyrexia [Unknown]
